FAERS Safety Report 5639938-6 (Version None)
Quarter: 2008Q1

REPORT INFORMATION
  Report Type: 
  Country: None (occurrence: None)
  Receive Date: 20080225
  Receipt Date: 20080225
  Transmission Date: 20080703
  Serious: Yes (Other)
  Sender: FDA-Public Use
  Company Number: None

PATIENT
  Age: 34 Year
  Sex: Female
  Weight: 47.1741 kg

DRUGS (5)
  1. TRI-EST/BI-EST [Suspect]
     Indication: ARTIFICIAL MENOPAUSE
     Dosage: 2.5 MGS TWICE/DAY PO
     Route: 048
     Dates: start: 20001201, end: 20080215
  2. TRI-EST/BI-EST [Suspect]
     Indication: HYSTERECTOMY
     Dosage: 2.5 MGS TWICE/DAY PO
     Route: 048
     Dates: start: 20001201, end: 20080215
  3. PROGESTERONE [Suspect]
     Indication: ARTIFICIAL MENOPAUSE
     Dosage: 50 MGS TWICE/DAY TOP
     Route: 061
     Dates: start: 20001201, end: 20080215
  4. PROGESTERONE [Suspect]
     Indication: BLOOD OESTROGEN
     Dosage: 50 MGS TWICE/DAY TOP
     Route: 061
     Dates: start: 20001201, end: 20080215
  5. PROGESTERONE [Suspect]
     Indication: HYSTERECTOMY
     Dosage: 50 MGS TWICE/DAY TOP
     Route: 061
     Dates: start: 20001201, end: 20080215

REACTIONS (16)
  - AGGRESSION [None]
  - ANXIETY [None]
  - BLOOD TESTOSTERONE INCREASED [None]
  - BREAST PAIN [None]
  - BREAST SWELLING [None]
  - DEPRESSION [None]
  - DRUG WITHDRAWAL SYNDROME [None]
  - FEELING ABNORMAL [None]
  - HEADACHE [None]
  - HOT FLUSH [None]
  - INSOMNIA [None]
  - MUSCULOSKELETAL DISCOMFORT [None]
  - PELVIC PAIN [None]
  - PROGESTERONE INCREASED [None]
  - URINARY TRACT INFECTION [None]
  - VAGINAL INFECTION [None]
